FAERS Safety Report 8731946 (Version 3)
Quarter: 2012Q4

REPORT INFORMATION
  Report Type: 
  Country: AU (occurrence: AU)
  Receive Date: 20120820
  Receipt Date: 20121109
  Transmission Date: 20130627
  Serious: Yes (Other)
  Sender: FDA-Public Use
  Company Number: AU-AMGEN-AUSSP2012051394

PATIENT
  Age: 44 Year
  Sex: Female

DRUGS (3)
  1. XGEVA [Suspect]
     Indication: BREAST CANCER METASTATIC
     Dosage: UNK
  2. DOXORUBICIN [Concomitant]
     Indication: BREAST CANCER METASTATIC
     Dosage: UNK
     Dates: start: 20120810
  3. CYCLOPHOSPHAMIDE [Concomitant]
     Indication: BREAST CANCER METASTATIC
     Dosage: UNK
     Dates: start: 20120810

REACTIONS (6)
  - Osteomyelitis [Unknown]
  - Pain in jaw [Unknown]
  - Hypoaesthesia [Unknown]
  - Swelling face [Unknown]
  - Respiratory disorder [Unknown]
  - Tooth infection [Unknown]
